FAERS Safety Report 24704935 (Version 1)
Quarter: 2024Q4

REPORT INFORMATION
  Report Type: Spontaneous
  Country: JP (occurrence: JP)
  Receive Date: 20241206
  Receipt Date: 20241206
  Transmission Date: 20250114
  Serious: Yes (Hospitalization, Other)
  Sender: VIIV
  Company Number: JP-VIIV HEALTHCARE-JP2024JPN152202

PATIENT

DRUGS (2)
  1. TRIUMEQ [Suspect]
     Active Substance: ABACAVIR SULFATE\DOLUTEGRAVIR SODIUM\LAMIVUDINE
     Dosage: UNK
  2. VALGANCICLOVIR [Suspect]
     Active Substance: VALGANCICLOVIR
     Dosage: UNK

REACTIONS (7)
  - Pneumomediastinum [Unknown]
  - Pneumothorax [Unknown]
  - Immune reconstitution inflammatory syndrome [Unknown]
  - Cytomegalovirus chorioretinitis [Unknown]
  - Subcutaneous emphysema [Unknown]
  - Pyrexia [Unknown]
  - Full blood count decreased [Unknown]
